FAERS Safety Report 9496344 (Version 1)
Quarter: 2013Q3

REPORT INFORMATION
  Report Type: Spontaneous
  Country: US (occurrence: US)
  Receive Date: 20130904
  Receipt Date: 20130904
  Transmission Date: 20140515
  Serious: Yes (Other)
  Sender: FDA-Public Use
  Company Number: US-SANOFI-AVENTIS-2013SA087901

PATIENT
  Age: 69 Year
  Sex: Male

DRUGS (2)
  1. LANTUS SOLOSTAR [Suspect]
     Indication: DIABETES MELLITUS
     Dosage: DOSE:70 UNIT(S)
     Route: 058
  2. SOLOSTAR [Concomitant]
     Indication: DIABETES MELLITUS

REACTIONS (2)
  - Macular degeneration [Unknown]
  - Eye disorder [Unknown]
